FAERS Safety Report 5435857-9 (Version None)
Quarter: 2007Q3

REPORT INFORMATION
  Report Type: 
  Country: None (occurrence: None)
  Receive Date: 20070831
  Receipt Date: 20070726
  Transmission Date: 20080115
  Serious: No
  Sender: FDA-Public Use
  Company Number: A0666195A

PATIENT
  Age: 22 Year
  Sex: Female

DRUGS (2)
  1. ALLI [Suspect]
  2. MULTIVITAMIN [Concomitant]

REACTIONS (3)
  - CHANGE OF BOWEL HABIT [None]
  - CONSTIPATION [None]
  - FEELING ABNORMAL [None]
